FAERS Safety Report 6418655-9 (Version None)
Quarter: 2009Q4

REPORT INFORMATION
  Report Type: 
  Country: None (occurrence: None)
  Receive Date: 20091026
  Receipt Date: 20091013
  Transmission Date: 20100525
  Serious: Yes (Other)
  Sender: FDA-Public Use
  Company Number: ADR39702009

PATIENT
  Age: 65 Year
  Sex: Male

DRUGS (10)
  1. SIMVASTATIN [Suspect]
     Indication: CEREBROVASCULAR ACCIDENT PROPHYLAXIS
     Dosage: 40 MG
     Route: 048
     Dates: start: 20080627, end: 20081105
  2. AMOXICILLIN [Concomitant]
  3. ASPIRIN [Concomitant]
  4. BENDROFLUMETHIAZIDE [Concomitant]
  5. CO-DYNAMOL [Concomitant]
  6. CORTISONE ENBREL [Concomitant]
  7. FOLIC ACID [Concomitant]
  8. INDOMETHACIN [Concomitant]
  9. LANSOPRAZOLE [Concomitant]
  10. METHOTREXATE [Concomitant]

REACTIONS (1)
  - TENDON RUPTURE [None]
